FAERS Safety Report 12693332 (Version 2)
Quarter: 2016Q3

REPORT INFORMATION
  Report Type: Spontaneous
  Country: US (occurrence: US)
  Receive Date: 20160829
  Receipt Date: 20160907
  Transmission Date: 20161109
  Serious: No
  Sender: FDA-Public Use
  Company Number: US-009507513-1608USA003862

PATIENT
  Sex: Female

DRUGS (3)
  1. SPIRIVA [Concomitant]
     Active Substance: TIOTROPIUM BROMIDE MONOHYDRATE
  2. DULERA [Suspect]
     Active Substance: FORMOTEROL FUMARATE DIHYDRATE\MOMETASONE FUROATE
     Indication: ASTHMA
     Dosage: 200/5 MCG/ TWO PUFFS, TWICE A DAY, INHALATION
     Route: 055
     Dates: start: 20160616
  3. ALBUTEROL. [Concomitant]
     Active Substance: ALBUTEROL

REACTIONS (2)
  - Cough [Not Recovered/Not Resolved]
  - Dyspnoea [Not Recovered/Not Resolved]

NARRATIVE: CASE EVENT DATE: 2016
